FAERS Safety Report 7546169-1 (Version None)
Quarter: 2011Q2

REPORT INFORMATION
  Report Type: 
  Country: None (occurrence: None)
  Receive Date: 20110614
  Receipt Date: 20031210
  Transmission Date: 20111010
  Serious: Yes (Hospitalization)
  Sender: FDA-Public Use
  Company Number: PHFR2003GB04595

PATIENT
  Sex: Male

DRUGS (8)
  1. AMITRIPTYLINE HYDROCHLORIDE [Concomitant]
     Dosage: 150 MG/DAY
     Route: 048
     Dates: end: 20031111
  2. CLOZAPINE [Suspect]
     Indication: SCHIZOPHRENIA
     Dosage: 350 MG/DAY
     Route: 048
     Dates: start: 20031028
  3. LORAZEPAM [Concomitant]
     Dosage: UNK, PRN
  4. VENLAFAXINE [Concomitant]
     Dosage: 75 MG/DAY
     Route: 048
     Dates: start: 20031113
  5. ORPHENADRINE CITRATE [Concomitant]
     Dosage: UNK, PRN
  6. SENOKOT [Concomitant]
     Dosage: 10 ML/DAY
     Route: 048
     Dates: start: 20031114
  7. ZOPICLONE [Concomitant]
     Dosage: UNK, PRN
  8. OLANZAPINE [Concomitant]
     Dosage: 20 MG/DAY
     Dates: end: 20031111

REACTIONS (6)
  - HAEMOGLOBIN DECREASED [None]
  - DELUSION [None]
  - INTENTIONAL SELF-INJURY [None]
  - FEELING GUILTY [None]
  - HALLUCINATION [None]
  - DEPRESSED MOOD [None]
